FAERS Safety Report 5094841-8 (Version None)
Quarter: 2006Q3

REPORT INFORMATION
  Report Type: 
  Country: None (occurrence: None)
  Receive Date: 20060831
  Receipt Date: 20060831
  Transmission Date: 20061208
  Serious: Yes (Other)
  Sender: FDA-Public Use
  Company Number: None

PATIENT
  Sex: Female
  Weight: 62.5964 kg

DRUGS (2)
  1. MICROGESTIN FE 1.5/30 [Suspect]
     Indication: CONTRACEPTION
     Dosage: 1 TAB DAILY PO
     Dates: start: 20051019, end: 20060322
  2. ORTHO EVRA [Suspect]
     Indication: CONTRACEPTION
     Dosage: 1 PATCH WEEKLYX3, OFF X 1 TRANSDERMAL
     Route: 062
     Dates: start: 20050502, end: 20051019

REACTIONS (1)
  - THROMBOSIS [None]
